FAERS Safety Report 5486471-0 (Version None)
Quarter: 2007Q4

REPORT INFORMATION
  Report Type: 
  Country: None (occurrence: None)
  Receive Date: 20071016
  Receipt Date: 20071015
  Transmission Date: 20080405
  Serious: Yes (Hospitalization)
  Sender: FDA-Public Use
  Company Number: B0489059A

PATIENT
  Age: 77 Year
  Sex: Female
  Weight: 53 kg

DRUGS (12)
  1. PAXIL [Suspect]
     Indication: DYSTHYMIC DISORDER
     Dosage: 10MG PER DAY
     Route: 048
     Dates: start: 20070831, end: 20070905
  2. RABEPRAZOLE SODIUM [Concomitant]
     Dosage: 10MG PER DAY
     Route: 048
     Dates: start: 20070327
  3. MEXAZOLAM [Concomitant]
     Indication: ANXIETY DISORDER
     Dosage: .5MG PER DAY
     Route: 048
     Dates: start: 20041207
  4. ASPIRIN [Concomitant]
     Indication: CEREBRAL INFARCTION
     Dosage: 100MG PER DAY
     Route: 048
     Dates: start: 20020725
  5. CEPHADOL [Concomitant]
     Indication: DIZZINESS
     Dosage: 75MG PER DAY
     Route: 048
     Dates: start: 20020826
  6. GASLON N [Concomitant]
     Indication: GASTRITIS
     Dosage: 4MG PER DAY
     Route: 048
     Dates: start: 20030214
  7. PRAVASTATIN [Concomitant]
     Dosage: 10MG PER DAY
     Route: 048
     Dates: start: 20041109
  8. CANDESARTAN CILEXETIL [Concomitant]
     Indication: HYPERTENSION
     Dosage: 4MG PER DAY
     Route: 048
     Dates: start: 20020725
  9. RHYTHMY [Concomitant]
     Indication: INSOMNIA
     Dosage: 2MG PER DAY
     Route: 048
     Dates: start: 20030317
  10. PURSENNID [Concomitant]
     Indication: CONSTIPATION
     Dosage: 24MG PER DAY
     Route: 048
     Dates: start: 20030317
  11. MALFA [Concomitant]
     Indication: GASTRITIS
     Route: 048
     Dates: start: 20070425
  12. DEPAS [Concomitant]
     Indication: ANXIETY DISORDER
     Route: 048
     Dates: start: 20020725

REACTIONS (6)
  - ALTERED STATE OF CONSCIOUSNESS [None]
  - BLOOD CHLORIDE DECREASED [None]
  - DIZZINESS [None]
  - GAIT DISTURBANCE [None]
  - HYPONATRAEMIA [None]
  - VOMITING [None]
